FAERS Safety Report 11000696 (Version 1)
Quarter: 2015Q2

REPORT INFORMATION
  Report Type: Spontaneous
  Country: US (occurrence: US)
  Receive Date: 20150408
  Receipt Date: 20150408
  Transmission Date: 20150821
  Serious: No
  Sender: FDA-Public Use
  Company Number: US-SA-2014SA142968

PATIENT
  Age: 36 Year
  Sex: Female

DRUGS (2)
  1. ALLEGRA [Suspect]
     Active Substance: FEXOFENADINE HYDROCHLORIDE
     Indication: DERMATITIS CONTACT
     Dosage: PRODUCT START DTAE: 2 DAYS AGO
     Route: 048
  2. ALEVE [Suspect]
     Active Substance: NAPROXEN SODIUM
     Indication: BACK PAIN
     Route: 065

REACTIONS (3)
  - Wrong drug administered [Unknown]
  - Extra dose administered [Unknown]
  - Back pain [Not Recovered/Not Resolved]
